FAERS Safety Report 7340770-6 (Version None)
Quarter: 2011Q1

REPORT INFORMATION
  Report Type: 
  Country: None (occurrence: None)
  Receive Date: 20110309
  Receipt Date: 20110303
  Transmission Date: 20110831
  Serious: Yes (Other)
  Sender: FDA-Public Use
  Company Number: NL-ROCHE-764241

PATIENT
  Sex: Female

DRUGS (4)
  1. METOPROLOL TARTRATE [Concomitant]
  2. XELODA [Suspect]
     Indication: BREAST CANCER
     Route: 048
     Dates: start: 20110124
  3. HYDROCHLOROTHIAZIDE [Concomitant]
  4. CLOMIPRAMINE HYDROCHLORIDE [Concomitant]

REACTIONS (1)
  - PANIC ATTACK [None]
